FAERS Safety Report 16698193 (Version 1)
Quarter: 2019Q3

REPORT INFORMATION
  Report Type: Spontaneous
  Country: US (occurrence: US)
  Receive Date: 20190813
  Receipt Date: 20190813
  Transmission Date: 20191004
  Serious: Yes (Hospitalization)
  Sender: FDA-Public Use
  Company Number: US-ASTRAZENECA-2019SF12941

PATIENT
  Age: 61 Year
  Sex: Male
  Weight: 115.7 kg

DRUGS (1)
  1. BYDUREON [Suspect]
     Active Substance: EXENATIDE
     Indication: TYPE 2 DIABETES MELLITUS
     Dosage: ONCE A WEEK
     Route: 058
     Dates: end: 2017

REACTIONS (5)
  - Benign neoplasm of thyroid gland [Unknown]
  - Cardiac disorder [Unknown]
  - Dysphonia [Unknown]
  - Peripheral swelling [Recovering/Resolving]
  - Rotator cuff repair [Recovered/Resolved]

NARRATIVE: CASE EVENT DATE: 2017
